FAERS Safety Report 6657960-8 (Version None)
Quarter: 2010Q1

REPORT INFORMATION
  Report Type: 
  Country: None (occurrence: None)
  Receive Date: 20100330
  Receipt Date: 20100324
  Transmission Date: 20100710
  Serious: Yes (Hospitalization)
  Sender: FDA-Public Use
  Company Number: JP-ROCHE-693765

PATIENT
  Age: 54 Year
  Sex: Female

DRUGS (2)
  1. HERCEPTIN [Suspect]
     Indication: BREAST CANCER METASTATIC
     Route: 041
  2. ZOLEDRONIC ACID [Concomitant]
     Dosage: DRUG REPORTED: ZOLEDRONIC ACID HYDRATE
     Route: 041

REACTIONS (2)
  - FANCONI SYNDROME [None]
  - RENAL IMPAIRMENT [None]
